FAERS Safety Report 4999214-1 (Version None)
Quarter: 2006Q2

REPORT INFORMATION
  Report Type: 
  Country: None (occurrence: None)
  Receive Date: 20060509
  Receipt Date: 20060421
  Transmission Date: 20061013
  Serious: Yes (Other)
  Sender: FDA-Public Use
  Company Number: US200604003691

PATIENT
  Age: 54 Year
  Sex: Female
  Weight: 45.4 kg

DRUGS (2)
  1. FORTEO [Suspect]
     Indication: OSTEOPOROSIS
     Dates: start: 20050901, end: 20060301
  2. FORTEO [Concomitant]

REACTIONS (11)
  - BALANCE DISORDER [None]
  - DIFFICULTY IN WALKING [None]
  - EYE SWELLING [None]
  - FEAR [None]
  - FEELING ABNORMAL [None]
  - MUSCLE DISORDER [None]
  - MUSCLE SPASMS [None]
  - MUSCULOSKELETAL STIFFNESS [None]
  - SWELLING [None]
  - SWOLLEN TONGUE [None]
  - WEIGHT INCREASED [None]
